FAERS Safety Report 7493111-8 (Version None)
Quarter: 2011Q2

REPORT INFORMATION
  Report Type: 
  Country: None (occurrence: None)
  Receive Date: 20110520
  Receipt Date: 20110513
  Transmission Date: 20111010
  Serious: Yes (Death)
  Sender: FDA-Public Use
  Company Number: PHHY2011CZ15692

PATIENT
  Sex: Female

DRUGS (9)
  1. TRAMADOL HYDROCHLORIDE [Concomitant]
  2. DEGAN [Concomitant]
  3. MEDROL [Concomitant]
  4. MORPHIN HCL [Concomitant]
  5. ZOMETA [Suspect]
     Indication: METASTASES TO BONE
     Dosage: UNK
     Dates: start: 20081001
  6. FURON [Concomitant]
  7. ATARALGIN [Concomitant]
  8. TORECAN [Concomitant]
  9. PALLADONE [Concomitant]

REACTIONS (7)
  - ABDOMINAL PAIN [None]
  - DIZZINESS [None]
  - NEOPLASM MALIGNANT [None]
  - METASTASES TO CENTRAL NERVOUS SYSTEM [None]
  - HEMIPARESIS [None]
  - DISEASE PROGRESSION [None]
  - DRY MOUTH [None]
